FAERS Safety Report 11584575 (Version 1)
Quarter: 2015Q4

REPORT INFORMATION
  Report Type: Spontaneous
  Country: JP (occurrence: JP)
  Receive Date: 20151001
  Receipt Date: 20151001
  Transmission Date: 20160304
  Serious: Yes (Hospitalization, Other)
  Sender: FDA-Public Use
  Company Number: JP-VIIV HEALTHCARE LIMITED-JP2015JPN016323

PATIENT
  Age: 23 Year
  Sex: Female

DRUGS (6)
  1. COMBIVIR [Suspect]
     Active Substance: LAMIVUDINE\ZIDOVUDINE
     Indication: HIV INFECTION
     Dosage: UNK
     Route: 048
     Dates: start: 20140528
  2. KALETRA [Concomitant]
     Active Substance: LOPINAVIR\RITONAVIR
     Indication: HIV INFECTION
     Dosage: UNK
     Route: 048
     Dates: start: 20140528
  3. EPZICOM [Suspect]
     Active Substance: ABACAVIR SULFATE\LAMIVUDINE
     Indication: HIV INFECTION
     Route: 048
  4. ZIAGEN [Suspect]
     Active Substance: ABACAVIR SULFATE
     Route: 048
  5. TIVICAY [Suspect]
     Active Substance: DOLUTEGRAVIR SODIUM
     Indication: HIV INFECTION
     Route: 048
  6. LEXIVA [Suspect]
     Active Substance: FOSAMPRENAVIR CALCIUM
     Indication: HIV INFECTION
     Dosage: UNK
     Route: 048

REACTIONS (7)
  - Headache [Unknown]
  - Toxic epidermal necrolysis [Unknown]
  - Faeces soft [Unknown]
  - Exposure during pregnancy [Unknown]
  - Live birth [Unknown]
  - Foetal growth restriction [Unknown]
  - Diarrhoea [Unknown]
